FAERS Safety Report 4384838-5 (Version None)
Quarter: 2004Q2

REPORT INFORMATION
  Report Type: 
  Country: None (occurrence: None)
  Receive Date: 20040617
  Receipt Date: 20040602
  Transmission Date: 20050107
  Serious: Yes (Life-Threatening, Hospitalization)
  Sender: FDA-Public Use
  Company Number: THYM-10154

PATIENT
  Age: 34 Year
  Sex: Male
  Weight: 68.0396 kg

DRUGS (16)
  1. THYMOGLOBULIN [Suspect]
     Indication: PROPHYLAXIS AGAINST TRANSPLANT REJECTION
     Dosage: 100 MG QD IV
     Route: 042
     Dates: start: 20040422, end: 20040424
  2. THYMOGLOBULIN [Suspect]
     Indication: PROPHYLAXIS AGAINST TRANSPLANT REJECTION
     Dosage: 50 MG QD IV
     Route: 042
     Dates: start: 20040425, end: 20040426
  3. THYMOGLOBULIN [Suspect]
     Indication: PROPHYLAXIS AGAINST TRANSPLANT REJECTION
     Dosage: 25 MG QD IV
     Route: 042
     Dates: start: 20040427, end: 20040427
  4. STEROIDS (UNSPECIFIED) [Concomitant]
  5. TYLENOL [Concomitant]
  6. BENADRYL [Concomitant]
  7. GANCICLOVIR [Concomitant]
  8. ANCEF [Concomitant]
  9. ZOSYN [Concomitant]
  10. CELLCEPT [Concomitant]
  11. PROGRAF [Concomitant]
  12. STEROID (UNSPECIFIED) [Concomitant]
  13. FENTANYL [Concomitant]
  14. NIMBEX [Concomitant]
  15. SOLU-MEDROL [Concomitant]
  16. GANCICLOVIR [Concomitant]

REACTIONS (15)
  - ANAEMIA [None]
  - BLOOD CREATININE INCREASED [None]
  - BLOOD LACTATE DEHYDROGENASE INCREASED [None]
  - COMPLICATIONS OF TRANSPLANTED KIDNEY [None]
  - CONDITION AGGRAVATED [None]
  - HAEMODIALYSIS [None]
  - HAPTOGLOBIN DECREASED [None]
  - LOBAR PNEUMONIA [None]
  - OLIGURIA [None]
  - RED BLOOD CELL SCHISTOCYTES PRESENT [None]
  - RENAL FAILURE [None]
  - RENAL TUBULAR NECROSIS [None]
  - THROMBOCYTOPENIA [None]
  - THROMBOTIC MICROANGIOPATHY [None]
  - WHITE BLOOD CELL COUNT DECREASED [None]
